FAERS Safety Report 12629075 (Version 1)
Quarter: 2016Q3

REPORT INFORMATION
  Report Type: Spontaneous
  Country: US (occurrence: US)
  Receive Date: 20160808
  Receipt Date: 20160808
  Transmission Date: 20161109
  Serious: Yes (Other)
  Sender: FDA-Public Use
  Company Number: US-AMGEN-USASP2016100166

PATIENT
  Age: 82 Year
  Sex: Male

DRUGS (26)
  1. PROCHLORPERAZINE MALEATE. [Concomitant]
     Active Substance: PROCHLORPERAZINE MALEATE
     Dosage: 10 MG, Q6 HOURS PRN
     Route: 048
  2. ALBUTEROL SULFATE. [Concomitant]
     Active Substance: ALBUTEROL SULFATE
     Dosage: UNK, INHALATION FOUR TIMES A DAY PRN
  3. FERROUS SULFATE. [Concomitant]
     Active Substance: FERROUS SULFATE
     Dosage: 325 MG, DAILY
     Route: 048
  4. MONTELUKAST SODIUM. [Concomitant]
     Active Substance: MONTELUKAST SODIUM
     Dosage: 10 MG, DAILY
     Route: 048
  5. ATENOLOL. [Concomitant]
     Active Substance: ATENOLOL
     Dosage: 25 MG, DAILY
     Route: 048
  6. COLACE [Concomitant]
     Active Substance: DOCUSATE SODIUM
     Dosage: 100 MG, PRN
     Route: 048
  7. CALCIUM 600 + D3 PLUS MINERALS [Concomitant]
     Dosage: 600-800 MG, BID
     Route: 048
  8. LOSARTAN POTASSIUM. [Concomitant]
     Active Substance: LOSARTAN POTASSIUM
     Dosage: 25 MG, DAILY
     Route: 048
  9. MIRALAX [Concomitant]
     Active Substance: POLYETHYLENE GLYCOL 3350
     Dosage: 17 G PACK, DAILY
     Route: 048
  10. NOVOLOG [Concomitant]
     Active Substance: INSULIN ASPART
     Dosage: UNK UNK, FOUR TIMES A DAY PRN
     Route: 058
  11. DENOSUMAB [Suspect]
     Active Substance: DENOSUMAB
     Indication: PRODUCT USED FOR UNKNOWN INDICATION
     Dosage: UNK
     Route: 065
  12. HYDROCODONE/ACETAMINOPHEN [Concomitant]
     Active Substance: ACETAMINOPHEN\HYDROCODONE
     Dosage: 1-2 (10-325 MG), Q6 HOURS PRN
     Route: 048
  13. POTASSIUM CHLORIDE. [Concomitant]
     Active Substance: POTASSIUM CHLORIDE
     Dosage: 10 MEQ, DAILY
     Route: 048
  14. VITAMIN D [Concomitant]
     Active Substance: CHOLECALCIFEROL
     Dosage: 1000 UNIT, DAILY
     Route: 048
  15. EPOGEN [Suspect]
     Active Substance: ERYTHROPOIETIN
     Indication: NEPHROGENIC ANAEMIA
     Dosage: 60,000 UNITS, ONCE
     Route: 058
     Dates: start: 20160706
  16. TORISEL [Concomitant]
     Active Substance: TEMSIROLIMUS
     Indication: RENAL CANCER METASTATIC
     Dosage: UNK
  17. PAXIL [Concomitant]
     Active Substance: PAROXETINE HYDROCHLORIDE
     Dosage: 20 MG, DAILY
     Route: 048
  18. ALPRAZOLAM. [Concomitant]
     Active Substance: ALPRAZOLAM
     Dosage: 0.5 MG, AT BED TIME
     Route: 048
  19. DOXAZOSIN MESYLATE. [Concomitant]
     Active Substance: DOXAZOSIN MESYLATE
     Dosage: 8 MG, DAILY
     Route: 048
  20. LEVEMIR [Concomitant]
     Active Substance: INSULIN DETEMIR
     Dosage: 12 UNITS (OF 100 UNITS/ML), BED TIME
     Route: 058
  21. PRAVASTATIN SODIUM. [Concomitant]
     Active Substance: PRAVASTATIN SODIUM
     Dosage: 20 MG, AT BED TIME
     Route: 048
  22. TYLENOL [Concomitant]
     Active Substance: ACETAMINOPHEN
     Dosage: 650 MG, PRN
     Route: 048
  23. LASIX [Concomitant]
     Active Substance: FUROSEMIDE
     Dosage: 20 MG, DAILY
     Route: 048
  24. LORATADINE. [Concomitant]
     Active Substance: LORATADINE
     Dosage: 10 MG, DAILY
     Route: 048
  25. CHERATUSSIN AC [Concomitant]
     Active Substance: CODEINE PHOSPHATE\GUAIFENESIN
     Dosage: 1-2 TSP (OF 100-10 MG/5ML) SYRUP, Q4 HOURS
     Route: 048
  26. TESSALON [Concomitant]
     Active Substance: BENZONATATE
     Dosage: 100 MG, TID PRN
     Route: 048

REACTIONS (21)
  - Chronic kidney disease [Unknown]
  - Fatigue [Not Recovered/Not Resolved]
  - Metastases to bone [Unknown]
  - Decreased appetite [Not Recovered/Not Resolved]
  - Muscular weakness [Unknown]
  - Nuclear magnetic resonance imaging abnormal [Unknown]
  - Hypophagia [Unknown]
  - Pain in extremity [Not Recovered/Not Resolved]
  - Hypertension [Unknown]
  - Type 2 diabetes mellitus [Unknown]
  - Back pain [Unknown]
  - Osteoarthritis [Unknown]
  - Depression [Unknown]
  - Benign prostatic hyperplasia [Unknown]
  - Arthralgia [Unknown]
  - Blood glucose abnormal [Unknown]
  - Anorectal disorder [Unknown]
  - Tenderness [Unknown]
  - Varicella [Unknown]
  - Hyperlipidaemia [Unknown]
  - Cough [Not Recovered/Not Resolved]
